FAERS Safety Report 9893927 (Version 1)
Quarter: 2014Q1

REPORT INFORMATION
  Report Type: Spontaneous
  Country: KR (occurrence: KR)
  Receive Date: 20140213
  Receipt Date: 20140213
  Transmission Date: 20141002
  Serious: Yes (Other)
  Sender: FDA-Public Use
  Company Number: KR-BAXTER-2014BAX006452

PATIENT
  Age: 30 Year
  Sex: Male
  Weight: 73.1 kg

DRUGS (8)
  1. FEIBA STIM4 [Suspect]
     Indication: HAEMORRHAGE
     Route: 065
     Dates: start: 20130309, end: 20130314
  2. FEIBA STIM4 [Suspect]
     Indication: HAEMOPHILIA
     Dosage: INCREASED
     Route: 065
     Dates: start: 20130314
  3. FEIBA STIM4 [Suspect]
     Route: 065
     Dates: start: 20130509
  4. NOVOSEVEN RT [Suspect]
     Indication: HAEMORRHAGE
     Dosage: 350 KIU IN 2- TO 3-HOUR INTERVALS
     Route: 065
     Dates: start: 20130304, end: 20130309
  5. NOVOSEVEN RT [Suspect]
     Indication: HAEMOPHILIA
     Dosage: CONTINUOUS ADMINISTRATION
     Route: 065
  6. NOVOSEVEN RT [Suspect]
     Dosage: 1 TO 2 TIMES PER DAY AT INTERVALS OF 12 TO 24 HOURS
     Route: 065
     Dates: start: 20130329, end: 20130421
  7. NOVOSEVEN RT [Suspect]
     Route: 065
     Dates: end: 20130509
  8. ALBUMIN [Concomitant]
     Indication: PRODUCT USED FOR UNKNOWN INDICATION
     Dosage: 13-100 MILLILITER BOTTLES WERE ADMINISTERED OVER 52 DAYS
     Route: 065
     Dates: start: 20130304, end: 20130425

REACTIONS (1)
  - Haemorrhage [Unknown]
